FAERS Safety Report 11371644 (Version 1)
Quarter: 2015Q3

REPORT INFORMATION
  Report Type: Spontaneous
  Country: DK (occurrence: DK)
  Receive Date: 20150812
  Receipt Date: 20150812
  Transmission Date: 20151125
  Serious: Yes (Hospitalization)
  Sender: FDA-Public Use
  Company Number: PHHY2015DK093085

PATIENT
  Age: 57 Year
  Sex: Male

DRUGS (2)
  1. PULMICORT TURBUHALER [Concomitant]
     Active Substance: BUDESONIDE
     Indication: ASTHMA
     Route: 065
  2. BIOCLAVID [Suspect]
     Active Substance: AMOXICILLIN\CLAVULANIC ACID
     Indication: INFECTION
     Route: 048
     Dates: start: 20150603, end: 20150606

REACTIONS (8)
  - Vomiting [Unknown]
  - Nausea [Unknown]
  - Hepatotoxicity [Recovering/Resolving]
  - Malaise [Unknown]
  - Pyrexia [Unknown]
  - Hepatic enzyme increased [Recovering/Resolving]
  - Jaundice [Unknown]
  - Fatigue [Unknown]

NARRATIVE: CASE EVENT DATE: 20150628
